FAERS Safety Report 6493385-6 (Version None)
Quarter: 2009Q4

REPORT INFORMATION
  Report Type: 
  Country: None (occurrence: None)
  Receive Date: 20091214
  Receipt Date: 20091207
  Transmission Date: 20100525
  Serious: Yes (Other)
  Sender: FDA-Public Use
  Company Number: FR-BRISTOL-MYERS SQUIBB COMPANY-14887830

PATIENT
  Age: 59 Year
  Sex: Female

DRUGS (10)
  1. IXABEPILONE [Suspect]
     Indication: BREAST CANCER
     Dates: start: 20091116
  2. CYCLOPHOSPHAMIDE [Suspect]
     Indication: BREAST CANCER
  3. EPIRUBICIN HCL [Suspect]
     Indication: BREAST CANCER
  4. FLUOROURACIL [Suspect]
     Indication: BREAST CANCER
  5. DOCETAXEL [Suspect]
  6. ZOPHREN [Concomitant]
  7. MOTILYO [Concomitant]
  8. MOPRAL [Concomitant]
  9. TAGAMET [Concomitant]
  10. MICONAZOLE [Concomitant]

REACTIONS (6)
  - ABDOMINAL PAIN [None]
  - DYSPHAGIA [None]
  - HAEMATEMESIS [None]
  - MUCOSAL EROSION [None]
  - MYALGIA [None]
  - RASH [None]
